FAERS Safety Report 6931038-8 (Version None)
Quarter: 2010Q3

REPORT INFORMATION
  Report Type: 
  Country: None (occurrence: None)
  Receive Date: 20100817
  Receipt Date: 20100817
  Transmission Date: 20110219
  Serious: No
  Sender: FDA-Public Use
  Company Number: None

PATIENT
  Age: 48 Year
  Sex: Female
  Weight: 67 kg

DRUGS (1)
  1. AMOXICILLIN [Suspect]
     Dosage: 500 MG TID PO
     Route: 048
     Dates: start: 20100710, end: 20100711

REACTIONS (1)
  - HEADACHE [None]
